FAERS Safety Report 17008743 (Version 1)
Quarter: 2019Q4

REPORT INFORMATION
  Report Type: Spontaneous
  Country: US (occurrence: US)
  Receive Date: 20191108
  Receipt Date: 20191108
  Transmission Date: 20200122
  Serious: Yes (Life-Threatening, Hospitalization)
  Sender: FDA-Public Use
  Company Number: US-JNJFOC-20191102610

PATIENT
  Age: 12 Year
  Sex: Female

DRUGS (1)
  1. DIPHENHYDRAMINE HYDROCHLORIDE. [Suspect]
     Active Substance: DIPHENHYDRAMINE HYDROCHLORIDE
     Indication: PRODUCT USED FOR UNKNOWN INDICATION
     Dosage: 147MG/KG
     Route: 048

REACTIONS (12)
  - Electrocardiogram QRS complex prolonged [Recovered/Resolved]
  - Atrioventricular block second degree [Unknown]
  - Ventricular dysfunction [Recovered/Resolved]
  - Ventricular tachycardia [Recovered/Resolved]
  - Ventricular arrhythmia [Recovered/Resolved]
  - Anticholinergic syndrome [Unknown]
  - Defect conduction intraventricular [Unknown]
  - Cardiovascular disorder [Unknown]
  - Electrocardiogram QT prolonged [Unknown]
  - Overdose [Unknown]
  - Seizure [Unknown]
  - Cerebrovascular accident [Unknown]
